FAERS Safety Report 23229346 (Version 1)
Quarter: 2023Q4

REPORT INFORMATION
  Report Type: Spontaneous
  Country: US (occurrence: US)
  Receive Date: 20231127
  Receipt Date: 20231127
  Transmission Date: 20240110
  Serious: No
  Sender: FDA-Public Use
  Company Number: US-Nobelpharma America, LLC-NPA-2023-02296

PATIENT
  Sex: Female

DRUGS (10)
  1. HYFTOR [Suspect]
     Active Substance: SIROLIMUS
     Route: 003
     Dates: start: 20231102
  2. BRIVIACT [Concomitant]
     Active Substance: BRIVARACETAM
  3. EMGALITY [Concomitant]
     Active Substance: GALCANEZUMAB-GNLM
  4. EPINEPHRINE [Concomitant]
     Active Substance: EPINEPHRINE
  5. LEXAPRO [Concomitant]
     Active Substance: ESCITALOPRAM OXALATE
  6. LISINOPRIL [Concomitant]
     Active Substance: LISINOPRIL
  7. ONDANSETRON [Concomitant]
     Active Substance: ONDANSETRON
  8. RIZATRIPTAN [Concomitant]
     Active Substance: RIZATRIPTAN
  9. XANAX [Concomitant]
     Active Substance: ALPRAZOLAM
  10. ZYRTEC [Concomitant]
     Active Substance: CETIRIZINE HYDROCHLORIDE

REACTIONS (1)
  - Skin irritation [None]
